FAERS Safety Report 22186804 (Version 1)
Quarter: 2023Q2

REPORT INFORMATION
  Report Type: Spontaneous
  Country: US (occurrence: None)
  Receive Date: 20230407
  Receipt Date: 20230407
  Transmission Date: 20230722
  Serious: Yes (Hospitalization)
  Sender: FDA-Public Use
  Company Number: None

PATIENT
  Age: 72 Year
  Sex: Male
  Weight: 108.54 kg

DRUGS (6)
  1. MYCOPHENOLIC ACID [Suspect]
     Active Substance: MYCOPHENOLIC ACID
     Indication: Prophylaxis against transplant rejection
     Dosage: FREQUENCY : TWICE A DAY;?
     Route: 048
     Dates: start: 20210127, end: 20230111
  2. SIROLIMUS [Concomitant]
     Active Substance: SIROLIMUS
     Dates: start: 20210127, end: 20230111
  3. CYCLOSPORINE [Concomitant]
     Active Substance: CYCLOSPORINE
     Dates: start: 20220330
  4. PREDNISONE [Concomitant]
     Active Substance: PREDNISONE
     Dates: start: 20210127
  5. AMLODIPINE [Concomitant]
     Active Substance: AMLODIPINE BESYLATE
     Dates: start: 20210127
  6. Mag-ox 400mg [Concomitant]
     Dates: start: 20210127

REACTIONS (2)
  - Oedema peripheral [None]
  - Renal function test abnormal [None]

NARRATIVE: CASE EVENT DATE: 20230111
